FAERS Safety Report 4782883-9 (Version None)
Quarter: 2005Q3

REPORT INFORMATION
  Report Type: 
  Country: None (occurrence: None)
  Receive Date: 20050914
  Receipt Date: 20050602
  Transmission Date: 20060218
  Serious: Yes (Hospitalization)
  Sender: FDA-Public Use
  Company Number: 163-20785-05060044

PATIENT
  Age: 63 Year
  Sex: Female

DRUGS (8)
  1. THALOMID [Suspect]
     Indication: MULTIPLE MYELOMA
     Dosage: 100 MG, DAILY, ORAL
     Route: 048
     Dates: start: 20050520, end: 20050525
  2. DEXAMETHASONE [Suspect]
     Indication: MULTIPLE MYELOMA
  3. ZOMETA [Suspect]
     Indication: MULTIPLE MYELOMA
  4. OXYCODONE HCL [Concomitant]
  5. XANAX [Concomitant]
  6. ALLOPURINOL [Concomitant]
  7. HYDROCORTISONE [Concomitant]
  8. PROTONIX [Concomitant]

REACTIONS (3)
  - BLOOD CREATININE INCREASED [None]
  - HYPERKALAEMIA [None]
  - RENAL FAILURE [None]
